FAERS Safety Report 8932925 (Version 1)
Quarter: 2012Q4

REPORT INFORMATION
  Report Type: 
  Country: NL (occurrence: NL)
  Receive Date: 20121129
  Receipt Date: 20121129
  Transmission Date: 20130627
  Serious: Yes (Death, Hospitalization)
  Sender: FDA-Public Use
  Company Number: PHHY2012NL109101

PATIENT
  Sex: Male

DRUGS (3)
  1. ZOMETA [Suspect]
     Indication: PROSTATE CANCER METASTATIC
     Dosage: 4 mg, every 28 days
     Route: 042
     Dates: start: 20101216
  2. ZOMETA [Suspect]
     Dosage: 4 mg, every 28 days
     Route: 042
     Dates: start: 20121002
  3. ZOMETA [Suspect]
     Dosage: 4 mg, every 28 days
     Route: 042
     Dates: start: 20121029

REACTIONS (2)
  - Intestinal perforation [Fatal]
  - Ileus [Fatal]
